FAERS Safety Report 17159135 (Version 1)
Quarter: 2019Q4

REPORT INFORMATION
  Report Type: Report from Study
  Country: US (occurrence: US)
  Receive Date: 20191216
  Receipt Date: 20191216
  Transmission Date: 20200122
  Serious: Yes (Death, Hospitalization)
  Sender: FDA-Public Use
  Company Number: US-TEVA-2019-US-1153093

PATIENT
  Age: 87 Year
  Sex: Female

DRUGS (1)
  1. VERAPAMIL [Suspect]
     Active Substance: VERAPAMIL HYDROCHLORIDE
     Indication: PRODUCT USED FOR UNKNOWN INDICATION
     Route: 065

REACTIONS (8)
  - Acute lung injury [Fatal]
  - Atrioventricular block [Fatal]
  - Toxicity to various agents [Fatal]
  - Electrocardiogram QT prolonged [Fatal]
  - Bradycardia [Fatal]
  - Acute respiratory distress syndrome [Fatal]
  - Hypotension [Fatal]
  - Acute kidney injury [Fatal]
